FAERS Safety Report 21362557 (Version 1)
Quarter: 2022Q3

REPORT INFORMATION
  Report Type: Spontaneous
  Country: CA (occurrence: None)
  Receive Date: 20220922
  Receipt Date: 20220922
  Transmission Date: 20221027
  Serious: Yes (Death)
  Sender: FDA-Public Use
  Company Number: CA-ROCHE-3181338

PATIENT
  Age: 74 Year
  Sex: Male

DRUGS (2)
  1. MYCOPHENOLATE MOFETIL [Suspect]
     Active Substance: MYCOPHENOLATE MOFETIL
     Indication: Immune thrombocytopenia
     Route: 065
  2. CYCLOSPORINE [Suspect]
     Active Substance: CYCLOSPORINE
     Indication: Immune thrombocytopenia
     Route: 065

REACTIONS (3)
  - Death [Fatal]
  - Off label use [Fatal]
  - Therapy non-responder [Fatal]
